FAERS Safety Report 12200926 (Version 3)
Quarter: 2016Q3

REPORT INFORMATION
  Report Type: Spontaneous
  Country: US (occurrence: US)
  Receive Date: 20160322
  Receipt Date: 20160718
  Transmission Date: 20161109
  Serious: No
  Sender: FDA-Public Use
  Company Number: US-GLAXOSMITHKLINE-US2016GSK036786

PATIENT
  Age: 56 Year
  Sex: Female

DRUGS (2)
  1. BENLYSTA [Suspect]
     Active Substance: BELIMUMAB
     Dosage: MONTHLY
     Route: 042
     Dates: start: 201505
  2. BENLYSTA [Suspect]
     Active Substance: BELIMUMAB
     Indication: SYSTEMIC LUPUS ERYTHEMATOSUS
     Dosage: UNK, CYC
     Route: 042
     Dates: start: 201509

REACTIONS (6)
  - Speech disorder [Recovered/Resolved]
  - Malaise [Recovered/Resolved]
  - Sinusitis [Recovering/Resolving]
  - Dysphonia [Recovered/Resolved]
  - Aphthous ulcer [Not Recovered/Not Resolved]
  - Drug dose omission [Recovered/Resolved]

NARRATIVE: CASE EVENT DATE: 201510
